FAERS Safety Report 12919927 (Version 1)
Quarter: 2016Q4

REPORT INFORMATION
  Report Type: Spontaneous
  Country: GB (occurrence: GB)
  Receive Date: 20161107
  Receipt Date: 20161107
  Transmission Date: 20170207
  Serious: Yes (Life-Threatening, Other)
  Sender: FDA-Public Use
  Company Number: GB-GLAXOSMITHKLINE-GB2016162488

PATIENT
  Age: 51 Year
  Sex: Female
  Weight: 66 kg

DRUGS (10)
  1. NAPROXEN. [Concomitant]
     Active Substance: NAPROXEN
     Dosage: 1 DF, UNK (TWICE DAILY)
     Dates: start: 20160914, end: 20160928
  2. DOCUSATE SODIUM. [Concomitant]
     Active Substance: DOCUSATE SODIUM
     Dosage: 1 DF, UNK (UP TO 4 TIMES/DAY FOR CO...)
     Dates: start: 20160914, end: 20161012
  3. TRIMETHOPRIM. [Concomitant]
     Active Substance: TRIMETHOPRIM
     Dosage: 1 DF, BID
     Dates: start: 20161014, end: 20161017
  4. PARACETAMOL [Concomitant]
     Active Substance: ACETAMINOPHEN
     Dosage: TAKE 1 OR 2 4 TIMES/DAY
     Dates: start: 20160914, end: 20161012
  5. ISPAGHULA EXTRACT\PSYLLIUM [Concomitant]
     Active Substance: PLANTAGO OVATA SEED\PLANTAGO SEED
     Dosage: 1 DF, BID (SACHET)
     Dates: start: 20140922
  6. DICLOFENAC [Suspect]
     Active Substance: DICLOFENAC
     Indication: PRODUCT USED FOR UNKNOWN INDICATION
     Dosage: UNK
     Route: 065
     Dates: start: 20161025
  7. INFLUENZA VACCINE UNSPECIFIED 2016-2017 SEASON [Concomitant]
     Indication: PROPHYLAXIS
     Route: 065
     Dates: start: 20161024, end: 20161024
  8. CODEINE PHOSPHATE [Concomitant]
     Active Substance: CODEINE PHOSPHATE
     Dosage: TAKE ONE OR TWO UP TO 4 TIMES/DAY ...
     Dates: start: 20160908, end: 20160915
  9. AMITRIPTYLINE HYDROCHLORIDE. [Concomitant]
     Active Substance: AMITRIPTYLINE HYDROCHLORIDE
     Dosage: 1 DF, QD (AT NIGHT)
     Dates: start: 20160908, end: 20161006
  10. LEVOTHYROXINE. [Concomitant]
     Active Substance: LEVOTHYROXINE
     Dosage: 1 DF, QD
     Dates: start: 20160411

REACTIONS (4)
  - Hypotension [Recovering/Resolving]
  - Pruritus generalised [Recovering/Resolving]
  - Circulatory collapse [Recovering/Resolving]
  - Loss of consciousness [Unknown]

NARRATIVE: CASE EVENT DATE: 20161025
